FAERS Safety Report 8791376 (Version 1)
Quarter: 2012Q4

REPORT INFORMATION
  Report Type: Spontaneous
  Country: US (occurrence: None)
  Receive Date: 20120914
  Receipt Date: 20120914
  Transmission Date: 20130627
  Serious: Yes (Disabling)
  Sender: FDA-Public Use
  Company Number: None

PATIENT
  Age: 74 Year
  Sex: Female
  Weight: 117.03 kg

DRUGS (1)
  1. WARFARIN [Suspect]
     Indication: POSTOPERATIVE THROMBOSIS
     Dosage: 4 mg  1 per day
     Dates: start: 200408, end: 20120915

REACTIONS (1)
  - Scar [None]
